FAERS Safety Report 9661030 (Version 1)
Quarter: 2013Q4

REPORT INFORMATION
  Report Type: Spontaneous
  Country: US (occurrence: US)
  Receive Date: 20131031
  Receipt Date: 20131031
  Transmission Date: 20140711
  Serious: Yes (Disabling)
  Sender: FDA-Public Use
  Company Number: US-GLAXOSMITHKLINE-A1047617A

PATIENT
  Sex: Female

DRUGS (1)
  1. COREG [Suspect]
     Indication: CARDIAC DISORDER
     Dosage: 12.5MG UNKNOWN
     Route: 065

REACTIONS (4)
  - Implantable defibrillator insertion [Unknown]
  - Disability [Unknown]
  - Cardiac valve disease [Unknown]
  - Cardiac disorder [Unknown]
